FAERS Safety Report 8786733 (Version 1)
Quarter: 2012Q4

REPORT INFORMATION
  Report Type: Report from Study
  Country: US (occurrence: US)
  Receive Date: 20120914
  Receipt Date: 20120914
  Transmission Date: 20130627
  Serious: Yes (Hospitalization)
  Sender: FDA-Public Use
  Company Number: US-ABBOTT-12P-163-0958741-00

PATIENT
  Age: 84 Year
  Sex: Female
  Weight: 55.84 kg

DRUGS (26)
  1. HUMIRA 40 MG/0.8 ML PEN [Suspect]
     Indication: RHEUMATOID ARTHRITIS
     Route: 058
     Dates: start: 20111215, end: 20120610
  2. PREDNISONE [Concomitant]
     Indication: PRODUCT USED FOR UNKNOWN INDICATION
  3. LASIX [Concomitant]
     Indication: PRODUCT USED FOR UNKNOWN INDICATION
     Dosage: 1.5 tablets 40 mg daily
  4. NEXIUM [Concomitant]
     Indication: PRODUCT USED FOR UNKNOWN INDICATION
  5. ONGLYZA [Concomitant]
     Indication: BLOOD GLUCOSE ABNORMAL
     Dosage: 5mg daily
  6. COLACE [Concomitant]
     Indication: PRODUCT USED FOR UNKNOWN INDICATION
     Dosage: 100mg three x daily
  7. MIRALAX [Concomitant]
     Indication: PRODUCT USED FOR UNKNOWN INDICATION
     Dosage: 17 gm up to three times a day
  8. MIRAPEX [Concomitant]
     Indication: RESTLESS LEGS SYNDROME
  9. FOLIC ACID [Concomitant]
     Indication: PRODUCT USED FOR UNKNOWN INDICATION
     Dosage: 1mg daily
  10. FORTEO [Concomitant]
     Indication: PRODUCT USED FOR UNKNOWN INDICATION
     Dosage: 20 mcg daily
     Route: 050
  11. ARICEPT [Concomitant]
     Indication: PRODUCT USED FOR UNKNOWN INDICATION
     Dosage: 5mg nightly
  12. ALPRAZOLAM [Concomitant]
     Indication: PRODUCT USED FOR UNKNOWN INDICATION
  13. ASA [Concomitant]
     Indication: PRODUCT USED FOR UNKNOWN INDICATION
     Dosage: 81 mg daily
  14. VITAMIN D3 [Concomitant]
     Indication: PRODUCT USED FOR UNKNOWN INDICATION
  15. OSCAL [Concomitant]
     Indication: PRODUCT USED FOR UNKNOWN INDICATION
  16. LEVOTHYROXINE [Concomitant]
     Indication: PRODUCT USED FOR UNKNOWN INDICATION
     Dosage: 25 mcg daily
  17. PERCOCET [Concomitant]
     Indication: PRODUCT USED FOR UNKNOWN INDICATION
     Dosage: 5mg twice a day as needed
  18. ZOLOFT [Concomitant]
     Indication: PRODUCT USED FOR UNKNOWN INDICATION
     Dosage: 50 mg daily
  19. OPANA [Concomitant]
     Indication: PAIN MANAGEMENT
  20. OPANA [Concomitant]
     Dosage: BREAKTHROUGH DOSE OF 10MG 2XDAY
  21. METHOTREXATE [Concomitant]
     Indication: PRODUCT USED FOR UNKNOWN INDICATION
     Dosage: 2.5 mg, 8 pills weekly
  22. SPIRONOLACTONE [Concomitant]
     Indication: PRODUCT USED FOR UNKNOWN INDICATION
  23. MELOXICAM [Concomitant]
     Indication: PRODUCT USED FOR UNKNOWN INDICATION
  24. ACCU-CHEK [Concomitant]
     Indication: PRODUCT USED FOR UNKNOWN INDICATION
  25. SENNA [Concomitant]
     Indication: PRODUCT USED FOR UNKNOWN INDICATION
  26. OPANA [Concomitant]
     Indication: PRODUCT USED FOR UNKNOWN INDICATION

REACTIONS (12)
  - Chest pain [Recovered/Resolved]
  - Pneumonia [Recovered/Resolved]
  - Chest pain [Recovering/Resolving]
  - Bronchitis [Recovering/Resolving]
  - Dyspnoea [Recovering/Resolving]
  - Productive cough [Recovering/Resolving]
  - Increased upper airway secretion [Recovering/Resolving]
  - Chronic obstructive pulmonary disease [Unknown]
  - Oedema peripheral [Unknown]
  - Pain in extremity [Unknown]
  - Rheumatoid lung [Unknown]
  - Hiatus hernia [Unknown]
